FAERS Safety Report 14367299 (Version 1)
Quarter: 2018Q1

REPORT INFORMATION
  Report Type: Spontaneous
  Country: US (occurrence: US)
  Receive Date: 20180108
  Receipt Date: 20180108
  Transmission Date: 20180509
  Serious: Yes (Disabling)
  Sender: FDA-Public Use
  Company Number: None

PATIENT
  Age: 49 Year
  Sex: Female
  Weight: 63 kg

DRUGS (2)
  1. FLAGYL [Suspect]
     Active Substance: METRONIDAZOLE\METRONIDAZOLE HYDROCHLORIDE
     Indication: VAGINAL INFECTION
     Route: 048
     Dates: start: 20180105, end: 20180108
  2. ABREVA [Concomitant]
     Active Substance: DOCOSANOL

REACTIONS (1)
  - Oral herpes [None]

NARRATIVE: CASE EVENT DATE: 20180106
